FAERS Safety Report 5591082-2 (Version None)
Quarter: 2008Q1

REPORT INFORMATION
  Report Type: 
  Country: None (occurrence: None)
  Receive Date: 20080115
  Receipt Date: 20080107
  Transmission Date: 20080703
  Serious: Yes (Hospitalization)
  Sender: FDA-Public Use
  Company Number: PHRM2007FR02782

PATIENT
  Age: 56 Year
  Sex: Male

DRUGS (5)
  1. LIORESAL [Suspect]
     Indication: NEURALGIA
     Dosage: UNK, UNK
     Route: 037
     Dates: start: 20070417
  2. SEVREDOL [Suspect]
     Indication: NEURALGIA
     Route: 048
     Dates: start: 20070224, end: 20070423
  3. SEVREDOL [Suspect]
     Route: 048
     Dates: start: 20070429, end: 20070429
  4. DURAGESIC-100 [Suspect]
     Indication: NEURALGIA
     Route: 062
  5. RIVOTRIL [Concomitant]
     Indication: STATUS EPILEPTICUS
     Route: 048

REACTIONS (6)
  - ABDOMINAL PAIN [None]
  - AGITATION [None]
  - CHILLS [None]
  - DIARRHOEA [None]
  - HYPERHIDROSIS [None]
  - PRURITUS [None]
